FAERS Safety Report 7015946-8 (Version None)
Quarter: 2010Q3

REPORT INFORMATION
  Report Type: 
  Country: None (occurrence: None)
  Receive Date: 20100927
  Receipt Date: 20100226
  Transmission Date: 20110219
  Serious: No
  Sender: FDA-Public Use
  Company Number: US-ASTRAZENECA-2010SE08527

PATIENT
  Age: 66 Year
  Sex: Male
  Weight: 74.8 kg

DRUGS (8)
  1. ARIMIDEX [Suspect]
     Indication: BREAST CANCER
     Route: 048
     Dates: start: 20080216, end: 20080910
  2. VIT D [Concomitant]
     Indication: NUTRITIONAL SUPPORT
  3. CALTRATE [Concomitant]
     Indication: NUTRITIONAL SUPPORT
  4. VITAMIN D WITH MULTI VITAMIN [Concomitant]
     Indication: NUTRITIONAL SUPPORT
  5. VITAMIN B COMPLEX CAP [Concomitant]
     Indication: NUTRITIONAL SUPPORT
  6. ASCORBIC ACID [Concomitant]
     Indication: NUTRITIONAL SUPPORT
  7. COENZYME Q10 [Concomitant]
     Indication: NUTRITIONAL SUPPORT
  8. VITAMIN E [Concomitant]
     Indication: NUTRITIONAL SUPPORT

REACTIONS (8)
  - ABDOMINAL DISCOMFORT [None]
  - DIZZINESS [None]
  - FATIGUE [None]
  - HOT FLUSH [None]
  - HYPERTENSION [None]
  - JOINT SWELLING [None]
  - ORAL CANDIDIASIS [None]
  - VULVOVAGINAL DRYNESS [None]
